FAERS Safety Report 5139947-X (Version None)
Quarter: 2006Q4

REPORT INFORMATION
  Report Type: 
  Country: None (occurrence: None)
  Receive Date: 20061031
  Receipt Date: 20061019
  Transmission Date: 20070319
  Serious: Yes (Death)
  Sender: FDA-Public Use
  Company Number: CH-JNJFOC-20061004679

PATIENT
  Age: 9 Decade
  Sex: Male

DRUGS (4)
  1. REMINYL [Suspect]
     Route: 048
  2. REMINYL [Suspect]
     Indication: DEMENTIA
     Route: 048
  3. KEPPRA [Concomitant]
     Indication: EPILEPSY
  4. TEGRETOL [Concomitant]
     Indication: EPILEPSY

REACTIONS (1)
  - BRONCHIAL CARCINOMA [None]
